FAERS Safety Report 7491324-2 (Version None)
Quarter: 2011Q2

REPORT INFORMATION
  Report Type: 
  Country: None (occurrence: None)
  Receive Date: 20110519
  Receipt Date: 20110513
  Transmission Date: 20111010
  Serious: Yes (Death)
  Sender: FDA-Public Use
  Company Number: B0720243A

PATIENT
  Age: 46 Year
  Sex: Female

DRUGS (4)
  1. LAMICTAL [Suspect]
     Indication: BIPOLAR DISORDER
     Dosage: 200MG PER DAY
     Route: 048
     Dates: start: 20090101
  2. CYMBALTA [Concomitant]
     Indication: DEPRESSION
     Dosage: 120MG PER DAY
     Route: 048
     Dates: start: 20100819, end: 20101030
  3. ABILIFY [Concomitant]
     Indication: BIPOLAR DISORDER
     Dates: start: 20100723, end: 20101026
  4. SEROQUEL [Concomitant]
     Indication: DEPRESSION
     Dosage: 50MG PER DAY
     Route: 048
     Dates: start: 20101027, end: 20101030

REACTIONS (1)
  - COMPLETED SUICIDE [None]
